FAERS Safety Report 9912491 (Version 1)
Quarter: 2014Q1

REPORT INFORMATION
  Report Type: Spontaneous
  Country: GB (occurrence: GB)
  Receive Date: 20140220
  Receipt Date: 20140220
  Transmission Date: 20141002
  Serious: Yes (Hospitalization, Other)
  Sender: FDA-Public Use
  Company Number: GB-BRISTOL-MYERS SQUIBB COMPANY-20250379

PATIENT
  Age: 52 Year
  Sex: Male
  Weight: 88.43 kg

DRUGS (9)
  1. SUSTIVA TABS [Suspect]
     Indication: HIV INFECTION
     Dates: start: 2009
  2. ATRIPLA [Suspect]
     Indication: HIV INFECTION
     Route: 048
  3. TRUVADA [Suspect]
     Indication: HIV INFECTION
     Dates: start: 2009
  4. ASPIRIN [Concomitant]
     Dates: start: 20131002
  5. BISOPROLOL [Concomitant]
     Dates: start: 20131002
  6. ATORVASTATIN [Concomitant]
     Dates: start: 20131002
  7. PERINDOPRIL [Concomitant]
     Dates: start: 20131002
  8. CLOPIDOGREL BISULFATE [Concomitant]
     Dates: start: 20131002
  9. RANITIDINE [Concomitant]

REACTIONS (5)
  - Coronary artery disease [Unknown]
  - Coronary artery occlusion [Unknown]
  - Chest pain [Unknown]
  - Dizziness [Recovered/Resolved]
  - Diarrhoea [Recovered/Resolved]
